FAERS Safety Report 6431320-7 (Version None)
Quarter: 2009Q4

REPORT INFORMATION
  Report Type: 
  Country: None (occurrence: None)
  Receive Date: 20091106
  Receipt Date: 20090811
  Transmission Date: 20100525
  Serious: Yes (Other)
  Sender: FDA-Public Use
  Company Number: JP-PFIZER INC-2009253564

PATIENT
  Age: 60 Year
  Sex: Female

DRUGS (3)
  1. CARDENALIN [Suspect]
     Indication: ESSENTIAL HYPERTENSION
     Dosage: 1 MG, 1X/DAY
     Route: 048
     Dates: start: 20090810, end: 20090817
  2. TENORMIN [Concomitant]
     Indication: ESSENTIAL HYPERTENSION
     Dosage: 25 MG/DAY
     Route: 048
     Dates: start: 20051212
  3. BLOPRESS [Concomitant]
     Indication: ESSENTIAL HYPERTENSION
     Dosage: 4 MG/DAY
     Route: 048
     Dates: start: 20040914

REACTIONS (3)
  - BLOOD PRESSURE INCREASED [None]
  - PALPITATIONS [None]
  - TACHYCARDIA [None]
